FAERS Safety Report 25801779 (Version 1)
Quarter: 2025Q3

REPORT INFORMATION
  Report Type: Spontaneous
  Country: EU (occurrence: EU)
  Receive Date: 20250915
  Receipt Date: 20250915
  Transmission Date: 20251021
  Serious: Yes (Hospitalization, Other)
  Sender: MYLAN
  Company Number: EU-MYLANLABS-2025M1076843

PATIENT
  Age: 37 Year
  Sex: Female

DRUGS (20)
  1. DOXORUBICIN [Suspect]
     Active Substance: DOXORUBICIN
     Indication: Chondrosarcoma
  2. DOXORUBICIN [Suspect]
     Active Substance: DOXORUBICIN
     Route: 042
  3. DOXORUBICIN [Suspect]
     Active Substance: DOXORUBICIN
     Route: 042
  4. DOXORUBICIN [Suspect]
     Active Substance: DOXORUBICIN
  5. PAZOPANIB [Suspect]
     Active Substance: PAZOPANIB
     Indication: Chondrosarcoma
     Dosage: 800 MILLIGRAM, QD
  6. PAZOPANIB [Suspect]
     Active Substance: PAZOPANIB
     Dosage: 800 MILLIGRAM, QD
     Route: 048
  7. PAZOPANIB [Suspect]
     Active Substance: PAZOPANIB
     Dosage: 800 MILLIGRAM, QD
     Route: 048
  8. PAZOPANIB [Suspect]
     Active Substance: PAZOPANIB
     Dosage: 800 MILLIGRAM, QD
  9. IFOSFAMIDE [Suspect]
     Active Substance: IFOSFAMIDE
     Indication: Chondrosarcoma
  10. IFOSFAMIDE [Suspect]
     Active Substance: IFOSFAMIDE
     Route: 042
  11. IFOSFAMIDE [Suspect]
     Active Substance: IFOSFAMIDE
     Route: 042
  12. IFOSFAMIDE [Suspect]
     Active Substance: IFOSFAMIDE
  13. TRABECTEDIN [Suspect]
     Active Substance: TRABECTEDIN
     Indication: Chondrosarcoma
  14. TRABECTEDIN [Suspect]
     Active Substance: TRABECTEDIN
     Route: 042
  15. TRABECTEDIN [Suspect]
     Active Substance: TRABECTEDIN
     Route: 042
  16. TRABECTEDIN [Suspect]
     Active Substance: TRABECTEDIN
  17. MESNA [Concomitant]
     Active Substance: MESNA
     Indication: Drug therapy
  18. MESNA [Concomitant]
     Active Substance: MESNA
     Route: 042
  19. MESNA [Concomitant]
     Active Substance: MESNA
     Route: 042
  20. MESNA [Concomitant]
     Active Substance: MESNA

REACTIONS (4)
  - Recall phenomenon [Recovered/Resolved]
  - Myositis [Recovered/Resolved]
  - Drug ineffective [Unknown]
  - Disease progression [Unknown]
